FAERS Safety Report 13360431 (Version 3)
Quarter: 2017Q2

REPORT INFORMATION
  Report Type: Spontaneous
  Country: US (occurrence: US)
  Receive Date: 20170322
  Receipt Date: 20170406
  Transmission Date: 20170830
  Serious: Yes (Other)
  Sender: FDA-Public Use
  Company Number: US-LUNDBECK-DKLU2027960

PATIENT
  Age: 83 Year
  Sex: Male

DRUGS (1)
  1. NORTHERA [Suspect]
     Active Substance: DROXIDOPA
     Indication: PRODUCT USED FOR UNKNOWN INDICATION
     Dosage: TITRATION SCHEDULE C (COMPLETE)
     Route: 065
     Dates: start: 20170304

REACTIONS (3)
  - Loss of consciousness [Not Recovered/Not Resolved]
  - Asthenia [Unknown]
  - Dysstasia [Unknown]

NARRATIVE: CASE EVENT DATE: 20170304
